FAERS Safety Report 6415175-2 (Version None)
Quarter: 2009Q4

REPORT INFORMATION
  Report Type: 
  Country: None (occurrence: None)
  Receive Date: 20091027
  Receipt Date: 20091016
  Transmission Date: 20100525
  Serious: Yes (Hospitalization)
  Sender: FDA-Public Use
  Company Number: US-WYE-H11638009

PATIENT
  Sex: Male
  Weight: 93.07 kg

DRUGS (7)
  1. ZOSYN [Suspect]
     Indication: PERIORBITAL CELLULITIS
     Dosage: 6 ROUNDS OF THERAPY
     Route: 042
  2. OXYCONTIN [Concomitant]
     Dosage: UNKNOWN
  3. PANTOPRAZOLE SODIUM [Concomitant]
  4. LORAZEPAM [Concomitant]
     Dosage: UNKNOWN
  5. TRAZODONE [Concomitant]
     Dosage: UNKNOWN
  6. METHADONE HYDROCHLORIDE [Concomitant]
     Dosage: UNKNOWN
  7. DURAGESIC-100 [Concomitant]
     Dosage: UNKNOWN

REACTIONS (1)
  - SKIN CANDIDA [None]
